FAERS Safety Report 6150864-9 (Version None)
Quarter: 2009Q2

REPORT INFORMATION
  Report Type: 
  Country: None (occurrence: None)
  Receive Date: 20090408
  Receipt Date: 20090326
  Transmission Date: 20091009
  Serious: Yes (Hospitalization, Other)
  Sender: FDA-Public Use
  Company Number: 2009S1003528

PATIENT
  Age: 65 Year
  Sex: Male
  Weight: 102.5129 kg

DRUGS (2)
  1. KETOCONAZOLE [Suspect]
     Indication: TINEA VERSICOLOUR
     Dosage: 200 MG; DAILY; ORAL
     Route: 048
     Dates: start: 20081205, end: 20081209
  2. PRILOSEC [Concomitant]

REACTIONS (10)
  - ADRENAL MASS [None]
  - ANAEMIA [None]
  - ASTHENIA [None]
  - MALAISE [None]
  - NIGHT SWEATS [None]
  - PYREXIA [None]
  - RED BLOOD CELL SEDIMENTATION RATE INCREASED [None]
  - RETROPERITONEAL FIBROSIS [None]
  - SKIN ODOUR ABNORMAL [None]
  - WEIGHT DECREASED [None]
